FAERS Safety Report 6218418-3 (Version None)
Quarter: 2009Q2

REPORT INFORMATION
  Report Type: 
  Country: None (occurrence: None)
  Receive Date: 20090608
  Receipt Date: 20090526
  Transmission Date: 20091009
  Serious: Yes (Hospitalization)
  Sender: FDA-Public Use
  Company Number: A0788961A

PATIENT
  Age: 76 Year
  Sex: Female

DRUGS (2)
  1. AVANDIA [Suspect]
     Dosage: 4MG PER DAY
     Route: 048
     Dates: start: 20040201, end: 20070201
  2. AVANDAMET [Suspect]
     Route: 048
     Dates: start: 20070101, end: 20070501

REACTIONS (1)
  - CEREBROVASCULAR ACCIDENT [None]
